FAERS Safety Report 4660315-9 (Version None)
Quarter: 2005Q2

REPORT INFORMATION
  Report Type: 
  Country: None (occurrence: None)
  Receive Date: 20050512
  Receipt Date: 20050504
  Transmission Date: 20051028
  Serious: Yes (Life-Threatening, Disabling)
  Sender: FDA-Public Use
  Company Number: US-MERCK-0505USA00640

PATIENT
  Age: 35 Year
  Sex: Male

DRUGS (1)
  1. VIOXX [Suspect]
     Indication: PAIN MANAGEMENT
     Route: 048
     Dates: start: 20020501, end: 20020501

REACTIONS (6)
  - BLOOD MAGNESIUM DECREASED [None]
  - BLOOD POTASSIUM DECREASED [None]
  - CHEST PAIN [None]
  - DIZZINESS [None]
  - DYSPNOEA [None]
  - VENTRICULAR EXTRASYSTOLES [None]
